FAERS Safety Report 24832694 (Version 3)
Quarter: 2025Q4

REPORT INFORMATION
  Report Type: Report from Study
  Country: EU (occurrence: EU)
  Receive Date: 20250110
  Receipt Date: 20251006
  Transmission Date: 20260118
  Serious: Yes (Other)
  Sender: PFIZER
  Company Number: EU-ROCHE-3165868

PATIENT
  Age: 74 Year
  Sex: Male
  Weight: 77 kg

DRUGS (19)
  1. CARBOPLATIN [Suspect]
     Active Substance: CARBOPLATIN
     Indication: Lung cancer metastatic
     Dosage: 645 MG
     Dates: start: 20220315
  2. ATEZOLIZUMAB [Suspect]
     Active Substance: ATEZOLIZUMAB
     Indication: Lung cancer metastatic
     Dosage: 1200 MG
     Route: 042
     Dates: start: 20220315
  3. ETOPOSIDE [Suspect]
     Active Substance: ETOPOSIDE
     Indication: Lung cancer metastatic
     Dosage: 184 MG
     Route: 042
     Dates: start: 20220315
  4. BUDESONIDE [Concomitant]
     Active Substance: BUDESONIDE
     Dosage: UNK, 2X/DAY
     Dates: start: 20220615
  5. HEPARIN [Concomitant]
     Active Substance: HEPARIN SODIUM
     Dosage: UNK, 1X/DAY
  6. IRBESARTAN [Concomitant]
     Active Substance: IRBESARTAN
     Dosage: UNK, 1X/DAY
  7. DILTIAZEM HYDROCHLORIDE [Concomitant]
     Active Substance: DILTIAZEM HYDROCHLORIDE
     Dosage: UNK, 2X/DAY
  8. TIMOLOL [Concomitant]
     Active Substance: TIMOLOL
     Dosage: UNK, 1X/DAY
  9. METRONIDAZOLE [Concomitant]
     Active Substance: METRONIDAZOLE
     Dosage: UNK UNK, 2X/DAY
     Dates: start: 20220615
  10. ACENOCOUMAROL [Concomitant]
     Active Substance: ACENOCOUMAROL
     Indication: Prophylaxis
     Dosage: UNK UNK, 1X/DAY
  11. ROSUVASTATIN [Concomitant]
     Active Substance: ROSUVASTATIN
     Dosage: UNK, 1X/DAY
  12. METOCLOPRAMIDE [Concomitant]
     Active Substance: METOCLOPRAMIDE
     Indication: Prophylaxis
     Dosage: UNK, 2X/DAY
  13. DEXAMETHASONE [Concomitant]
     Active Substance: DEXAMETHASONE
     Dosage: UNK
  14. ACETAMINOPHEN [Concomitant]
     Active Substance: ACETAMINOPHEN
     Dosage: UNK, 2X/DAY
  15. LANSOPRAZOLE [Concomitant]
     Active Substance: LANSOPRAZOLE
     Indication: Prophylaxis
     Dosage: UNK, 1X/DAY
  16. LACTULOSE [Concomitant]
     Active Substance: LACTULOSE
     Dosage: UNK, 2X/DAY
  17. ZOLPIDEM [Concomitant]
     Active Substance: ZOLPIDEM TARTRATE
     Indication: Prophylaxis
     Dosage: UNK, 1X/DAY
  18. FILGRASTIM [Concomitant]
     Active Substance: FILGRASTIM
     Dosage: UNK
     Dates: start: 20221018, end: 20221020
  19. UREA [Concomitant]
     Active Substance: UREA
     Dosage: UNK, 2X/DAY
     Dates: start: 20221020

REACTIONS (5)
  - Neurotoxicity [Not Recovered/Not Resolved]
  - Inappropriate antidiuretic hormone secretion [Recovered/Resolved]
  - Dizziness [Recovered/Resolved]
  - Constipation [Recovered/Resolved]
  - Hyponatraemia [Recovered/Resolved]

NARRATIVE: CASE EVENT DATE: 20220812
